FAERS Safety Report 4656808-0 (Version None)
Quarter: 2005Q2

REPORT INFORMATION
  Report Type: 
  Country: None (occurrence: None)
  Receive Date: 20050506
  Receipt Date: 20050418
  Transmission Date: 20051028
  Serious: Yes (Hospitalization)
  Sender: FDA-Public Use
  Company Number: MEDI-0003174 (1)

PATIENT
  Age: 4 Month
  Sex: Male
  Weight: 4.69 kg

DRUGS (4)
  1. SYNAGIS [Suspect]
     Indication: ANTIVIRAL PROPHYLAXIS
     Dosage: 65 MG, 1 IN 30 D, INTRAMUSCULAR
     Route: 030
     Dates: start: 20041201, end: 20050217
  2. ALBUTEROL [Concomitant]
  3. PULMICORT [Concomitant]
  4. PEPCID [Concomitant]

REACTIONS (6)
  - ANOREXIA [None]
  - DYSPNOEA [None]
  - GASTROOESOPHAGEAL REFLUX DISEASE [None]
  - NASOPHARYNGITIS [None]
  - RESPIRATORY DISTRESS [None]
  - WEIGHT DECREASED [None]
